FAERS Safety Report 12809801 (Version 2)
Quarter: 2017Q2

REPORT INFORMATION
  Report Type: Spontaneous
  Country: US (occurrence: US)
  Receive Date: 20161005
  Receipt Date: 20170518
  Transmission Date: 20170830
  Serious: Yes (Other)
  Sender: FDA-Public Use
  Company Number: US-BRISTOL-MYERS SQUIBB COMPANY-BMS-2016-080870

PATIENT

DRUGS (2)
  1. ABILIFY [Suspect]
     Active Substance: ARIPIPRAZOLE
     Indication: BIPOLAR DISORDER
     Dosage: UNK
     Route: 065
     Dates: start: 20100421, end: 20160530
  2. ABILIFY [Suspect]
     Active Substance: ARIPIPRAZOLE
     Indication: ANXIETY
     Route: 065

REACTIONS (8)
  - Compulsive shopping [Unknown]
  - Obsessive-compulsive disorder [Unknown]
  - Gambling disorder [Unknown]
  - Weight increased [Unknown]
  - Psychosexual disorder [Unknown]
  - Impulsive behaviour [Unknown]
  - Surgery [Unknown]
  - Binge eating [Unknown]
